FAERS Safety Report 14317927 (Version 1)
Quarter: 2017Q4

REPORT INFORMATION
  Report Type: Spontaneous
  Country: US (occurrence: US)
  Receive Date: 20171222
  Receipt Date: 20171222
  Transmission Date: 20180321
  Serious: Yes (Disabling, Other)
  Sender: FDA-Public Use
  Company Number: None

PATIENT
  Age: 44 Year
  Sex: Female
  Weight: 72 kg

DRUGS (6)
  1. LAMICYAL [Concomitant]
  2. TRINTELLIX [Suspect]
     Active Substance: VORTIOXETINE HYDROBROMIDE
     Indication: DEPRESSION
     Dosage: ?          OTHER STRENGTH:DONT KNOW;?
     Route: 048
  3. NADALAL [Concomitant]
  4. MVI [Concomitant]
     Active Substance: VITAMINS
  5. 6MP [Concomitant]
     Active Substance: MERCAPTOPURINE
  6. AMBIEN [Concomitant]
     Active Substance: ZOLPIDEM TARTRATE

REACTIONS (4)
  - Nausea [None]
  - Vomiting [None]
  - Joint stiffness [None]
  - Pain [None]

NARRATIVE: CASE EVENT DATE: 20170413
